FAERS Safety Report 9769556 (Version 1)
Quarter: 2013Q4

REPORT INFORMATION
  Report Type: Spontaneous
  Country: JP (occurrence: JP)
  Receive Date: 20131218
  Receipt Date: 20131218
  Transmission Date: 20140711
  Serious: Yes (Hospitalization)
  Sender: FDA-Public Use
  Company Number: JP-SA-2013SA128892

PATIENT
  Age: 93 Year
  Sex: Female

DRUGS (2)
  1. LYXUMIA [Suspect]
     Indication: PRODUCT USED FOR UNKNOWN INDICATION
     Route: 058
  2. LANTUS [Concomitant]
     Indication: PRODUCT USED FOR UNKNOWN INDICATION
     Route: 058

REACTIONS (3)
  - Blood pressure decreased [Recovered/Resolved]
  - Dysphagia [Recovered/Resolved]
  - Vomiting [Recovered/Resolved]
